FAERS Safety Report 8108093-5 (Version None)
Quarter: 2012Q1

REPORT INFORMATION
  Report Type: 
  Country: None (occurrence: None)
  Receive Date: 20120202
  Receipt Date: 20120131
  Transmission Date: 20120608
  Serious: Yes (Death, Hospitalization, Other)
  Sender: FDA-Public Use
  Company Number: PE-PFIZER INC-2012010792

PATIENT
  Age: 90 Year
  Sex: Female

DRUGS (2)
  1. NORVASC [Suspect]
  2. DIOVAN HCT [Concomitant]
     Dosage: UNK
     Route: 048

REACTIONS (3)
  - GANGRENE [None]
  - SEPSIS [None]
  - CEREBROVASCULAR ACCIDENT [None]
